FAERS Safety Report 10027696 (Version 1)
Quarter: 2014Q1

REPORT INFORMATION
  Report Type: Spontaneous
  Country: FR (occurrence: None)
  Receive Date: 20140318
  Receipt Date: 20140318
  Transmission Date: 20141002
  Serious: Yes (Hospitalization)
  Sender: FDA-Public Use
  Company Number: 2014CP000038

PATIENT
  Age: 83 Year
  Sex: Male

DRUGS (11)
  1. PERFALGAN (PARACETAMOL) [Suspect]
     Route: 042
     Dates: start: 20140206
  2. INIPOMP [Suspect]
     Route: 042
     Dates: start: 20140206
  3. GLUCOSE [Suspect]
     Route: 042
     Dates: start: 20140206
  4. PHLOROGLUCINOL (PHLOROQLUCINOL) [Suspect]
     Route: 042
     Dates: start: 20140206
  5. TRAMADOL HCL [Suspect]
     Route: 042
     Dates: start: 20140206
  6. LOXEN (NICARDIPINE HYDROCHLORIDE) SLOW RELEASE [Suspect]
     Route: 042
     Dates: start: 20140210
  7. LYSINE ACETYLSALICYLATE [Suspect]
     Route: 042
     Dates: start: 20140207
  8. PROPRANOLOL HCL [Suspect]
     Route: 042
     Dates: start: 20140207
  9. AMINO ACID + CARBOHYDRATE + LIPID [Suspect]
     Route: 042
     Dates: start: 20140207
  10. TRINITRINE [Concomitant]
  11. ONDANSETRON HCL [Concomitant]

REACTIONS (3)
  - Vein disorder [None]
  - Infusion site erythema [None]
  - Infusion site induration [None]
